FAERS Safety Report 8881471 (Version 2)
Quarter: 2012Q4

REPORT INFORMATION
  Report Type: Report from Study
  Country: US (occurrence: US)
  Receive Date: 20121101
  Receipt Date: 20121115
  Transmission Date: 20130627
  Serious: Yes (Other)
  Sender: FDA-Public Use
  Company Number: US-ABBOTT-12P-163-0999577-00

PATIENT
  Sex: Female

DRUGS (23)
  1. HUMIRA PEN [Suspect]
     Indication: CROHN^S DISEASE
     Dates: start: 200911
  2. PREMARIN [Concomitant]
     Indication: PRODUCT USED FOR UNKNOWN INDICATION
     Dosage: Daily
     Route: 048
  3. ACIPHEX [Concomitant]
     Indication: GASTROOESOPHAGEAL REFLUX DISEASE
     Route: 048
  4. ACIPHEX [Concomitant]
     Dosage: Daily
     Route: 048
  5. PENNSAID [Concomitant]
     Indication: PRODUCT USED FOR UNKNOWN INDICATION
  6. BENICAR [Concomitant]
     Indication: HYPERTENSION
     Dosage: Daily
     Route: 048
  7. DILTIAZEM [Concomitant]
     Indication: HYPERTENSION
     Dosage: Daily
     Route: 048
  8. SERTRALINE [Concomitant]
     Indication: NERVOUSNESS
     Dosage: Daily
     Route: 048
  9. SERTRALINE [Concomitant]
     Indication: ANALGESIC THERAPY
  10. AZATHIOPRINE [Concomitant]
     Indication: CROHN^S DISEASE
     Dosage: Daily
     Route: 048
  11. MELOXICAM [Concomitant]
     Indication: PRODUCT USED FOR UNKNOWN INDICATION
  12. ENTOCORT [Concomitant]
     Indication: CROHN^S DISEASE
     Dosage: Daily
     Route: 048
  13. GABAPENTIN [Concomitant]
     Indication: BONE DISORDER
  14. VITAMIN B12 [Concomitant]
     Indication: PRODUCT USED FOR UNKNOWN INDICATION
  15. BUPROPION [Concomitant]
     Indication: PRODUCT USED FOR UNKNOWN INDICATION
     Dosage: Daily
     Route: 048
  16. CLARINEX [Concomitant]
     Indication: HYPERSENSITIVITY
     Dosage: Daily as needed
     Route: 048
  17. XYZAL [Concomitant]
     Indication: HYPERSENSITIVITY
     Dosage: At bedtime
  18. TRAZODONE [Concomitant]
     Indication: INSOMNIA
     Route: 048
  19. OXYCODONE [Concomitant]
     Indication: PAIN
     Dosage: 5/325mg; up to four times daily
  20. IMITREX [Concomitant]
     Indication: MIGRAINE
  21. HYDROXYZINE [Concomitant]
     Indication: PRURITUS
     Route: 048
  22. PHENERGAN [Concomitant]
     Indication: NAUSEA
     Route: 048
  23. ASTEPRO [Concomitant]
     Indication: HYPERSENSITIVITY

REACTIONS (4)
  - Osteoarthritis [Unknown]
  - Tendon injury [Recovered/Resolved]
  - Injection site pain [Not Recovered/Not Resolved]
  - Vitamin D decreased [Unknown]
